FAERS Safety Report 5307064-1 (Version None)
Quarter: 2007Q2

REPORT INFORMATION
  Report Type: 
  Country: None (occurrence: None)
  Receive Date: 20070425
  Receipt Date: 20070412
  Transmission Date: 20071010
  Serious: Yes (Congenital Anomaly, Other)
  Sender: FDA-Public Use
  Company Number: PHBS2007US06919

PATIENT

DRUGS (4)
  1. RISPERDAL [Suspect]
     Route: 064
  2. PAROXETINE [Concomitant]
     Dosage: MATERNAL DOSE 20 MG/DAY
     Route: 064
  3. FLUPENTIXOL [Concomitant]
     Dosage: MATERNAL DOSE 50 MG/EVERY TWO WEEKS
     Route: 064
  4. CARBAMAZEPINE [Suspect]
     Dosage: MATERNAL DOSE 600 MG/DAY
     Route: 064

REACTIONS (4)
  - CEREBRAL CYST [None]
  - DRUG EXPOSURE DURING PREGNANCY [None]
  - HAEMORRHAGE [None]
  - PREMATURE BABY [None]
